FAERS Safety Report 18315927 (Version 3)
Quarter: 2021Q2

REPORT INFORMATION
  Report Type: Spontaneous
  Country: US (occurrence: US)
  Receive Date: 20200927
  Receipt Date: 20210515
  Transmission Date: 20210717
  Serious: Yes (Other)
  Sender: FDA-Public Use
  Company Number: US-SA-2020SA261129

PATIENT
  Age: 40 Year
  Sex: Male

DRUGS (1)
  1. ZANTAC [Suspect]
     Active Substance: RANITIDINE HYDROCHLORIDE
     Indication: DYSPEPSIA
     Dosage: 300 MG, QD
     Dates: start: 200811, end: 200912

REACTIONS (4)
  - Renal cancer stage IV [Unknown]
  - Brain neoplasm malignant [Unknown]
  - Colorectal cancer stage III [Recovering/Resolving]
  - Malignant joint neoplasm [Unknown]

NARRATIVE: CASE EVENT DATE: 20091216
